FAERS Safety Report 7328203-7 (Version None)
Quarter: 2011Q1

REPORT INFORMATION
  Report Type: 
  Country: None (occurrence: None)
  Receive Date: 20110224
  Receipt Date: 20110224
  Transmission Date: 20110831
  Serious: No
  Sender: FDA-Public Use
  Company Number: None

PATIENT
  Sex: Female

DRUGS (1)
  1. MIRCETTE [Suspect]
     Indication: DYSTHYMIC DISORDER
     Dosage: DAILY USE

REACTIONS (2)
  - HEADACHE [None]
  - MOOD ALTERED [None]
